FAERS Safety Report 23778455 (Version 1)
Quarter: 2024Q2

REPORT INFORMATION
  Report Type: Spontaneous
  Country: US (occurrence: None)
  Receive Date: 20240424
  Receipt Date: 20240424
  Transmission Date: 20240715
  Serious: Yes (Disabling)
  Sender: FDA-Public Use
  Company Number: None

PATIENT
  Age: 72 Year
  Sex: Male
  Weight: 81.9 kg

DRUGS (4)
  1. ROSUVASTATIN [Suspect]
     Active Substance: ROSUVASTATIN
     Indication: Blood cholesterol increased
     Dosage: 1 TABLET AT BEDTIME ORAL?
     Route: 048
     Dates: start: 20170315, end: 20240115
  2. EZETIMIBE [Suspect]
     Active Substance: EZETIMIBE
  3. Losartan (for blood pressure) [Concomitant]
  4. COENZYME Q10 [Concomitant]
     Active Substance: DIETARY SUPPLEMENT\UBIDECARENONE

REACTIONS (6)
  - Muscular weakness [None]
  - Arthralgia [None]
  - Dyspepsia [None]
  - Respiration abnormal [None]
  - Myalgia [None]
  - Memory impairment [None]

NARRATIVE: CASE EVENT DATE: 20240115
